FAERS Safety Report 9189964 (Version 1)
Quarter: 2013Q1

REPORT INFORMATION
  Report Type: Spontaneous
  Country: US (occurrence: None)
  Receive Date: 20130322
  Receipt Date: 20130322
  Transmission Date: 20140127
  Serious: Yes (Other)
  Sender: FDA-Public Use
  Company Number: None

PATIENT
  Age: 48 Year
  Sex: Female

DRUGS (2)
  1. NUEDEXTA [Suspect]
     Indication: COGNITIVE DISORDER
     Dosage: 1 TAB, ONE DOSE
  2. NUEDEXTA [Suspect]
     Indication: BRAIN INJURY
     Dosage: 1 TAB, ONE DOSE

REACTIONS (12)
  - Psychotic disorder [None]
  - Paranoia [None]
  - Agitation [None]
  - Anger [None]
  - Fatigue [None]
  - Depression [None]
  - Confusional state [None]
  - Psychomotor hyperactivity [None]
  - Memory impairment [None]
  - Disorientation [None]
  - Tachyphrenia [None]
  - Motor dysfunction [None]
